FAERS Safety Report 15407825 (Version 2)
Quarter: 2018Q3

REPORT INFORMATION
  Report Type: Spontaneous
  Country: US (occurrence: US)
  Receive Date: 20180920
  Receipt Date: 20180921
  Transmission Date: 20181010
  Serious: No
  Sender: FDA-Public Use
  Company Number: US-PFIZER INC-2018374684

PATIENT
  Age: 33 Year
  Sex: Female
  Weight: 77.98 kg

DRUGS (2)
  1. DEPO?PROVERA [Suspect]
     Active Substance: MEDROXYPROGESTERONE ACETATE
     Indication: CONTRACEPTION
     Dosage: UNK
     Dates: start: 201805
  2. DEPO?PROVERA [Suspect]
     Active Substance: MEDROXYPROGESTERONE ACETATE
     Dosage: UNK
     Dates: start: 20180731

REACTIONS (11)
  - Jaw disorder [Unknown]
  - Neck pain [Unknown]
  - Menorrhagia [Not Recovered/Not Resolved]
  - Tension headache [Unknown]
  - Malaise [Unknown]
  - Depressed mood [Unknown]
  - Loss of personal independence in daily activities [Unknown]
  - Migraine [Not Recovered/Not Resolved]
  - Hot flush [Unknown]
  - Pain [Unknown]
  - Mood swings [Unknown]

NARRATIVE: CASE EVENT DATE: 201806
